FAERS Safety Report 21672208 (Version 1)
Quarter: 2022Q4

REPORT INFORMATION
  Report Type: Spontaneous
  Country: GB (occurrence: None)
  Receive Date: 20221202
  Receipt Date: 20221202
  Transmission Date: 20230113
  Serious: Yes (Other)
  Sender: FDA-Public Use
  Company Number: GB-MHRA-MED-202211211408474980-LZCFB

PATIENT
  Age: 57 Year
  Sex: Male

DRUGS (3)
  1. AMOXICILLIN\CLAVULANIC ACID [Suspect]
     Active Substance: AMOXICILLIN\CLAVULANIC ACID
     Indication: Infection
  2. OBINUTUZUMAB [Concomitant]
     Active Substance: OBINUTUZUMAB
     Indication: Chronic lymphocytic leukaemia
  3. VENETOCLAX [Concomitant]
     Active Substance: VENETOCLAX
     Indication: Chronic lymphocytic leukaemia

REACTIONS (2)
  - Flushing [Recovering/Resolving]
  - Rash [Recovering/Resolving]
